FAERS Safety Report 9479579 (Version 1)
Quarter: 2013Q3

REPORT INFORMATION
  Report Type: Spontaneous
  Country: IT (occurrence: IT)
  Receive Date: 20130827
  Receipt Date: 20130827
  Transmission Date: 20140515
  Serious: Yes (Other)
  Sender: FDA-Public Use
  Company Number: IT-JNJFOC-20130813153

PATIENT
  Age: 10 Year
  Sex: Female

DRUGS (4)
  1. PARACETAMOL [Suspect]
     Route: 065
  2. PARACETAMOL [Suspect]
     Indication: PYREXIA
     Route: 065
  3. LAMOTRIGINE [Suspect]
     Indication: EPILEPSY
     Route: 065
  4. VALPROIC ACID [Suspect]
     Indication: EPILEPSY
     Route: 065

REACTIONS (1)
  - Stevens-Johnson syndrome [Recovered/Resolved]
